FAERS Safety Report 11700491 (Version 1)
Quarter: 2015Q4

REPORT INFORMATION
  Report Type: Spontaneous
  Country: US (occurrence: US)
  Receive Date: 20151104
  Receipt Date: 20151104
  Transmission Date: 20160304
  Serious: No
  Sender: FDA-Public Use
  Company Number: US-ELI_LILLY_AND_COMPANY-US201101001099

PATIENT
  Age: 81 Year
  Sex: Female

DRUGS (1)
  1. FORTEO [Suspect]
     Active Substance: TERIPARATIDE
     Indication: BONE DISORDER
     Dosage: 20 UG, DAILY (1/D)
     Route: 058
     Dates: start: 20101229, end: 20110108

REACTIONS (5)
  - Renal disorder [Unknown]
  - Feeling abnormal [Unknown]
  - Asthenia [Unknown]
  - Drug dose omission [Unknown]
  - Constipation [Unknown]

NARRATIVE: CASE EVENT DATE: 20110108
